FAERS Safety Report 17105427 (Version 1)
Quarter: 2019Q4

REPORT INFORMATION
  Report Type: Spontaneous
  Country: US (occurrence: US)
  Receive Date: 20191203
  Receipt Date: 20191203
  Transmission Date: 20200122
  Serious: No
  Sender: FDA-Public Use
  Company Number: US-SA-2019SA330758

PATIENT
  Age: 41 Year
  Sex: Male

DRUGS (7)
  1. CLOMIPHENE [CLOMIFENE] [Concomitant]
  2. CLOMIPRAMIN [Concomitant]
     Active Substance: CLOMIPRAMINE
  3. DUPIXENT [Suspect]
     Active Substance: DUPILUMAB
     Indication: DERMATITIS
     Dosage: 300 MG, QOW
     Route: 058
     Dates: start: 20190430
  4. LEVOTHYROXIN [Concomitant]
     Active Substance: LEVOTHYROXINE
  5. HYDROMET [HYDROCHLOROTHIAZIDE;METHYLDOPA] [Concomitant]
  6. METOPROLOL. [Concomitant]
     Active Substance: METOPROLOL
  7. PAROXETIN [PAROXETINE] [Concomitant]
     Active Substance: PAROXETINE

REACTIONS (1)
  - Heart rate increased [Not Recovered/Not Resolved]

NARRATIVE: CASE EVENT DATE: 20191121
